FAERS Safety Report 9441962 (Version 1)
Quarter: 2013Q3

REPORT INFORMATION
  Report Type: Spontaneous
  Country: US (occurrence: US)
  Receive Date: 20130806
  Receipt Date: 20130806
  Transmission Date: 20140515
  Serious: No
  Sender: FDA-Public Use
  Company Number: US-PFIZER INC-2013226561

PATIENT
  Sex: Male

DRUGS (2)
  1. ADVIL GELCAPS [Suspect]
     Indication: SWELLING
     Dosage: 400 MG (BY TAKING 2 ^GELCAPS^ OF 200MG TOGETHER), ONCE A DAY
     Route: 048
     Dates: start: 20130802
  2. ADVIL GELCAPS [Suspect]
     Indication: ARTHRALGIA

REACTIONS (2)
  - Rhinorrhoea [Unknown]
  - Sinus congestion [Unknown]
